FAERS Safety Report 4827433-3 (Version None)
Quarter: 2005Q4

REPORT INFORMATION
  Report Type: 
  Country: None (occurrence: None)
  Receive Date: 20051110
  Receipt Date: 20051102
  Transmission Date: 20060501
  Serious: Yes (Hospitalization)
  Sender: FDA-Public Use
  Company Number: FR_051107422

PATIENT
  Age: 81 Year
  Sex: Male
  Weight: 83 kg

DRUGS (7)
  1. ALIMTA [Suspect]
     Indication: PLEURAL MESOTHELIOMA
     Dosage: 500 MG/M2/1 OTHER
  2. CISPLATIN [Concomitant]
  3. ALLOPURINOL [Concomitant]
  4. ATORVASTATIN CALCIUM [Concomitant]
  5. ALDACTONE [Concomitant]
  6. AMARYL [Concomitant]
  7. TOPFENA (KETOPROFEN) [Concomitant]

REACTIONS (4)
  - ACUTE PULMONARY OEDEMA [None]
  - BRAIN NATRIURETIC PEPTIDE INCREASED [None]
  - CARDIAC VALVE DISEASE [None]
  - CONGESTIVE CARDIOMYOPATHY [None]
